FAERS Safety Report 8443672-7 (Version None)
Quarter: 2012Q2

REPORT INFORMATION
  Report Type: 
  Country: None (occurrence: None)
  Receive Date: 20120606
  Receipt Date: 20120526
  Transmission Date: 20120825
  Serious: Yes (Other)
  Sender: FDA-Public Use
  Company Number: DSA_57626_2012

PATIENT

DRUGS (3)
  1. DOCETAXEL [Suspect]
     Indication: METASTATIC GASTRIC CANCER
     Dosage: DF
  2. FLUOROURACIL [Suspect]
     Indication: METASTATIC GASTRIC CANCER
     Dosage: DF
  3. CISPLATIN [Suspect]
     Indication: METASTATIC GASTRIC CANCER
     Dosage: DF

REACTIONS (1)
  - LEUKOPENIA [None]
